FAERS Safety Report 6803855-6 (Version None)
Quarter: 2010Q2

REPORT INFORMATION
  Report Type: 
  Country: None (occurrence: None)
  Receive Date: 20100628
  Receipt Date: 20100618
  Transmission Date: 20101027
  Serious: Yes (Hospitalization, Other)
  Sender: FDA-Public Use
  Company Number: US-ABBOTT-10P-163-0652642-00

PATIENT
  Sex: Female
  Weight: 93.07 kg

DRUGS (3)
  1. LUPRON DEPOT [Suspect]
     Indication: ENDOMETRIOSIS
     Route: 030
     Dates: start: 20100101, end: 20100201
  2. PERCOCET [Concomitant]
     Indication: DRUG USE FOR UNKNOWN INDICATION
  3. NORETHEDRONE [Concomitant]
     Indication: DRUG USE FOR UNKNOWN INDICATION

REACTIONS (5)
  - AMNESIA [None]
  - CHEST PAIN [None]
  - HEMIPARESIS [None]
  - VAGINAL HAEMORRHAGE [None]
  - VISION BLURRED [None]
